FAERS Safety Report 9373723 (Version 2)
Quarter: 2013Q3

REPORT INFORMATION
  Report Type: Spontaneous
  Country: FR (occurrence: FR)
  Receive Date: 20130627
  Receipt Date: 20130717
  Transmission Date: 20140515
  Serious: Yes (Hospitalization, Other)
  Sender: FDA-Public Use
  Company Number: FR-BAXTER-2013BAX023040

PATIENT
  Age: 2 Year
  Sex: Female
  Weight: 13 kg

DRUGS (12)
  1. HOLOXAN 2000 MG, POUDRE POUR USAGE PARENT?RAL [Suspect]
     Indication: EWING^S SARCOMA
     Route: 042
     Dates: start: 20130514, end: 20130516
  2. VINCRISTINE [Suspect]
     Indication: EWING^S SARCOMA
     Route: 042
     Dates: start: 20130514, end: 20130514
  3. DOXORUBICINE [Suspect]
     Indication: EWING^S SARCOMA
     Route: 042
     Dates: start: 20130514, end: 20130516
  4. ETOPOPHOS [Suspect]
     Indication: EWING^S SARCOMA
     Route: 042
     Dates: start: 20130514, end: 20130516
  5. BACTRIM [Concomitant]
     Indication: PRODUCT USED FOR UNKNOWN INDICATION
     Route: 048
  6. ONDANSETRON [Concomitant]
     Indication: PRODUCT USED FOR UNKNOWN INDICATION
     Route: 065
  7. ELUDRIL [Concomitant]
     Indication: PRODUCT USED FOR UNKNOWN INDICATION
     Route: 048
  8. SODIUM BICARBONATE [Concomitant]
     Indication: PRODUCT USED FOR UNKNOWN INDICATION
     Route: 048
  9. DOLIPRANE [Concomitant]
     Indication: PRODUCT USED FOR UNKNOWN INDICATION
     Route: 048
  10. CODENFAN [Concomitant]
     Indication: PRODUCT USED FOR UNKNOWN INDICATION
     Route: 065
  11. TAZOCILLINE [Concomitant]
     Indication: PRODUCT USED FOR UNKNOWN INDICATION
     Route: 042
     Dates: start: 20130523, end: 20130527
  12. GRANOCYT [Concomitant]
     Indication: PRODUCT USED FOR UNKNOWN INDICATION
     Route: 042
     Dates: start: 20130523, end: 20130528

REACTIONS (2)
  - Palmar-plantar erythrodysaesthesia syndrome [Recovered/Resolved]
  - Febrile bone marrow aplasia [Recovered/Resolved]
